FAERS Safety Report 15608002 (Version 1)
Quarter: 2018Q4

REPORT INFORMATION
  Report Type: Spontaneous
  Country: GB (occurrence: GB)
  Receive Date: 20181112
  Receipt Date: 20181112
  Transmission Date: 20190205
  Serious: Yes (Other)
  Sender: FDA-Public Use
  Company Number: GB-TEVA-2018-GB-973913

PATIENT
  Age: 1 Year
  Sex: Female
  Weight: 10 kg

DRUGS (7)
  1. CHLORPHENAMINE [Concomitant]
     Active Substance: CHLORPHENIRAMINE MALEATE
     Dosage: 5 ML DAILY;
     Dates: start: 20181009
  2. PARACETAMOL [Concomitant]
     Active Substance: ACETAMINOPHEN
     Dates: start: 20181001, end: 20181002
  3. CETRABEN EMOLLIENT CREAM [Concomitant]
     Dosage: APPLY TO THE AFFECTED AREAS OF SKIN UP TO 4 TIMES A DAY
     Dates: start: 20181009, end: 20181009
  4. ERYTHROMYCIN ETHYLSUCCINATE. [Concomitant]
     Active Substance: ERYTHROMYCIN ETHYLSUCCINATE
     Dosage: 20 ML DAILY;
     Dates: start: 20181009
  5. CETIRIZINE [Concomitant]
     Active Substance: CETIRIZINE HYDROCHLORIDE
     Dosage: 2 ML DAILY; FOR 5 DAYS
     Dates: start: 20181009, end: 20181009
  6. AMOXICILLIN. [Suspect]
     Active Substance: AMOXICILLIN
     Dosage: 15 ML DAILY; 125MG/5ML
     Route: 065
     Dates: start: 20181008
  7. CHLORAMPHENICOL [Concomitant]
     Active Substance: CHLORAMPHENICOL
     Dosage: IN AFFECTED EYE(S)
     Route: 050
     Dates: start: 20180811, end: 20180818

REACTIONS (1)
  - Rash macular [Unknown]

NARRATIVE: CASE EVENT DATE: 20181009
